FAERS Safety Report 5862590-1 (Version None)
Quarter: 2008Q3

REPORT INFORMATION
  Report Type: 
  Country: None (occurrence: None)
  Receive Date: 20080827
  Receipt Date: 20080827
  Transmission Date: 20090109
  Serious: No
  Sender: FDA-Public Use
  Company Number: None

PATIENT
  Age: 45 Year
  Sex: Female
  Weight: 64.4 kg

DRUGS (1)
  1. PENTOTHAL [Suspect]
     Indication: ELECTROCONVULSIVE THERAPY
     Dosage: 175 MG STAT IV
     Route: 042
     Dates: start: 20080825, end: 20080825

REACTIONS (2)
  - DRUG INEFFECTIVE [None]
  - PHARMACEUTICAL PRODUCT COMPLAINT [None]
